FAERS Safety Report 18918758 (Version 2)
Quarter: 2021Q1

REPORT INFORMATION
  Report Type: Spontaneous
  Country: US (occurrence: US)
  Receive Date: 20210220
  Receipt Date: 20210308
  Transmission Date: 20210420
  Serious: Yes (Hospitalization, Other)
  Sender: FDA-Public Use
  Company Number: US-TAKEDA-2021TUS009375

PATIENT
  Sex: Female
  Weight: 70 kg

DRUGS (29)
  1. METOPROLOL SUCCINATE. [Concomitant]
     Active Substance: METOPROLOL SUCCINATE
  2. VITAMIN E [Concomitant]
     Active Substance: .ALPHA.-TOCOPHEROL
  3. AMBIEN [Concomitant]
     Active Substance: ZOLPIDEM TARTRATE
  4. CIPRO [Concomitant]
     Active Substance: CIPROFLOXACIN HYDROCHLORIDE
  5. VITAMIN A [RETINOL] [Concomitant]
     Active Substance: RETINOL
  6. URSODIOL. [Concomitant]
     Active Substance: URSODIOL
  7. VALACYCLOVIR [Concomitant]
     Active Substance: VALACYCLOVIR HYDROCHLORIDE
  8. GAMMAGARD [Suspect]
     Active Substance: HUMAN IMMUNOGLOBULIN G
     Indication: DERMATOMYOSITIS
     Dosage: 30 GRAM, Q4WEEKS
     Route: 042
     Dates: start: 20210111
  9. SODIUM CHLORIDE. [Concomitant]
     Active Substance: SODIUM CHLORIDE
  10. PILOCARPINE. [Concomitant]
     Active Substance: PILOCARPINE
  11. RITUXAN [Concomitant]
     Active Substance: RITUXIMAB
  12. NYSTATIN. [Concomitant]
     Active Substance: NYSTATIN
  13. LEVOTHYROXINE. [Concomitant]
     Active Substance: LEVOTHYROXINE
  14. DIPHENHYDRAMINE. [Concomitant]
     Active Substance: DIPHENHYDRAMINE
  15. HYDROXYZINE PAMOATE. [Concomitant]
     Active Substance: HYDROXYZINE PAMOATE
  16. PROMETHAZINE [Concomitant]
     Active Substance: PROMETHAZINE HYDROCHLORIDE
  17. HEPARIN [Concomitant]
     Active Substance: HEPARIN SODIUM
  18. CELLCEPT [Concomitant]
     Active Substance: MYCOPHENOLATE MOFETIL\MYCOPHENOLATE MOFETIL HYDROCHLORIDE
  19. PREDNISONE. [Concomitant]
     Active Substance: PREDNISONE
  20. CYCLOBENZAPRINE. [Concomitant]
     Active Substance: CYCLOBENZAPRINE
  21. ACETAMINOPHEN. [Concomitant]
     Active Substance: ACETAMINOPHEN
  22. TRAMADOL. [Concomitant]
     Active Substance: TRAMADOL
  23. NORMAL SALINE [Concomitant]
     Active Substance: SODIUM CHLORIDE
  24. EPINEPHRINE. [Concomitant]
     Active Substance: EPINEPHRINE
  25. LMX4 [Concomitant]
     Active Substance: LIDOCAINE
  26. ATORVASTATIN [Concomitant]
     Active Substance: ATORVASTATIN
  27. OMEPRAZOLE. [Concomitant]
     Active Substance: OMEPRAZOLE
  28. CELEBREX [Concomitant]
     Active Substance: CELECOXIB
  29. PLAQUENIL [Concomitant]
     Active Substance: HYDROXYCHLOROQUINE SULFATE

REACTIONS (4)
  - Vascular device infection [Unknown]
  - Off label use [Unknown]
  - Infusion site erythema [Unknown]
  - Infusion site swelling [Unknown]
